FAERS Safety Report 4607183-9 (Version None)
Quarter: 2005Q1

REPORT INFORMATION
  Report Type: 
  Country: None (occurrence: None)
  Receive Date: 20050309
  Receipt Date: 20050222
  Transmission Date: 20050727
  Serious: Yes (Hospitalization, Other)
  Sender: FDA-Public Use
  Company Number: USA050289865

PATIENT
  Sex: Female

DRUGS (1)
  1. EVISTA [Suspect]

REACTIONS (6)
  - ANXIETY [None]
  - DEEP VEIN THROMBOSIS [None]
  - FEAR [None]
  - INSOMNIA [None]
  - PULMONARY EMBOLISM [None]
  - STRESS [None]
